FAERS Safety Report 25508677 (Version 1)
Quarter: 2025Q3

REPORT INFORMATION
  Report Type: Spontaneous
  Country: CA (occurrence: CA)
  Receive Date: 20250703
  Receipt Date: 20250703
  Transmission Date: 20251021
  Serious: Yes (Other)
  Sender: CELLTRION
  Company Number: CA-PFIZER INC-202400235185

PATIENT

DRUGS (12)
  1. INFLECTRA [Suspect]
     Active Substance: INFLIXIMAB-DYYB
     Indication: Psoriatic arthropathy
     Route: 042
     Dates: start: 20240531
  2. INFLECTRA [Suspect]
     Active Substance: INFLIXIMAB-DYYB
     Route: 042
     Dates: start: 20250110
  3. BUPROPION [Concomitant]
     Active Substance: BUPROPION
  4. CLONAZEPAM [Concomitant]
     Active Substance: CLONAZEPAM
  5. HYDROCHLOROTHIAZIDE [Concomitant]
     Active Substance: HYDROCHLOROTHIAZIDE
  6. LORAZEPAM [Concomitant]
     Active Substance: LORAZEPAM
  7. PREDNISONE [Concomitant]
     Active Substance: PREDNISONE
  8. PANTOPRAZOLE [Concomitant]
     Active Substance: PANTOPRAZOLE
  9. RAMIPRIL [Concomitant]
     Active Substance: RAMIPRIL
  10. ROSUVASTATIN [Concomitant]
     Active Substance: ROSUVASTATIN
  11. SYNTHROID [Concomitant]
     Active Substance: LEVOTHYROXINE SODIUM
  12. TRAZODONE [Concomitant]
     Active Substance: TRAZODONE HYDROCHLORIDE

REACTIONS (2)
  - Breast cancer [Recovered/Resolved]
  - Immune system disorder [Unknown]
